FAERS Safety Report 10152894 (Version 1)
Quarter: 2014Q2

REPORT INFORMATION
  Report Type: Spontaneous
  Country: US (occurrence: US)
  Receive Date: 20140505
  Receipt Date: 20140505
  Transmission Date: 20141212
  Serious: Yes (Hospitalization)
  Sender: FDA-Public Use
  Company Number: US-GLAXOSMITHKLINE-A1070987A

PATIENT
  Age: 52 Year
  Sex: Female

DRUGS (9)
  1. ADVAIR HFA [Suspect]
     Indication: CHRONIC OBSTRUCTIVE PULMONARY DISEASE
     Dosage: 1PUFF TWICE PER DAY
     Route: 055
     Dates: start: 201307
  2. VENTOLIN [Suspect]
     Indication: CHRONIC OBSTRUCTIVE PULMONARY DISEASE
     Dosage: 1PUFF THREE TIMES PER DAY
     Route: 055
     Dates: start: 201307
  3. ZANTAC [Concomitant]
  4. PROTONIX [Concomitant]
  5. MELOXICAM [Concomitant]
  6. PROVENTIL [Concomitant]
  7. ADVIL [Concomitant]
  8. ATROVENT [Concomitant]
  9. MOTRIN [Concomitant]

REACTIONS (2)
  - Pneumonia [Recovered/Resolved]
  - White blood cell disorder [Recovered/Resolved]
